FAERS Safety Report 18760509 (Version 1)
Quarter: 2021Q1

REPORT INFORMATION
  Report Type: Spontaneous
  Country: US (occurrence: US)
  Receive Date: 20210119
  Receipt Date: 20210119
  Transmission Date: 20210419
  Serious: No
  Sender: FDA-Public Use
  Company Number: US-ROCHE-2459269

PATIENT
  Age: 74 Year
  Sex: Female
  Weight: 73.8 kg

DRUGS (8)
  1. PANTOPRAZOLE [Concomitant]
     Active Substance: PANTOPRAZOLE
     Dosage: 30 DAYS, ONGOING: YES
     Route: 048
  2. RITUXAN [Suspect]
     Active Substance: RITUXIMAB
     Indication: PEMPHIGOID
     Dosage: FOR 6 DOSES TOTAL ;ONGOING: YES
     Route: 041
     Dates: start: 20190924
  3. PROMETHAZINE [Concomitant]
     Active Substance: PROMETHAZINE HYDROCHLORIDE
     Indication: NAUSEA
     Dosage: AS REQUIRED, 1 EVERY 4 HOURS AS NEEDED ;ONGOING: YES
     Route: 048
  4. MECLIZINE [Concomitant]
     Active Substance: MECLIZINE HYDROCHLORIDE
     Indication: DIZZINESS
     Dosage: TIMES 14 DAYS ;ONGOING: YES
     Route: 048
  5. TIMOLOL. [Concomitant]
     Active Substance: TIMOLOL
     Dosage: 1 DROP BOTH EYES ;ONGOING: YES
     Route: 047
  6. PROMETHAZINE [Concomitant]
     Active Substance: PROMETHAZINE HYDROCHLORIDE
     Indication: VOMITING
  7. GATIFLOXACIN. [Concomitant]
     Active Substance: GATIFLOXACIN
     Dosage: 1 DROP EACH EYE DAILY ;ONGOING: YES
     Route: 047
  8. CHOLECALCIFEROL [Concomitant]
     Active Substance: CHOLECALCIFEROL
     Dosage: ONGOING: YES
     Route: 048

REACTIONS (3)
  - Intentional product use issue [Unknown]
  - Hypertension [Unknown]
  - Off label use [Unknown]

NARRATIVE: CASE EVENT DATE: 20191029
